FAERS Safety Report 10237031 (Version 1)
Quarter: 2014Q2

REPORT INFORMATION
  Report Type: Report from Study
  Country: CA (occurrence: CA)
  Receive Date: 20140613
  Receipt Date: 20140613
  Transmission Date: 20141212
  Serious: Yes (Other)
  Sender: FDA-Public Use
  Company Number: CA-BRISTOL-MYERS SQUIBB COMPANY-20672754

PATIENT
  Age: 47 Year
  Sex: Female

DRUGS (6)
  1. ABATACEPT SUBQ INJECTION 125MG/ML [Suspect]
     Indication: RHEUMATOID ARTHRITIS
     Dosage: 1 DF = 125 UNITS NOS
     Route: 058
     Dates: start: 20131211
  2. NAPROXEN [Concomitant]
  3. PLAQUENIL [Concomitant]
  4. PREDNISONE [Concomitant]
  5. SERTRALINE [Concomitant]
  6. IMOVANE [Concomitant]

REACTIONS (2)
  - Carpal tunnel syndrome [Unknown]
  - Tooth abscess [Unknown]
